FAERS Safety Report 9717146 (Version 1)
Quarter: 2013Q4

REPORT INFORMATION
  Report Type: Spontaneous
  Country: GB (occurrence: GB)
  Receive Date: 20131127
  Receipt Date: 20131127
  Transmission Date: 20140711
  Serious: Yes (Hospitalization, Other)
  Sender: FDA-Public Use
  Company Number: GB-TEVA-445720ISR

PATIENT
  Age: 47 Year
  Sex: Male
  Weight: 93 kg

DRUGS (5)
  1. OFLOXACIN [Suspect]
     Indication: PROSTATITIS
     Dosage: 800 MILLIGRAM DAILY; 1X400MG IN THE MORNING AND 1X400MG IN THE EVENING
     Route: 048
     Dates: start: 20131019, end: 20131102
  2. DIHYDROCODEINE [Concomitant]
     Indication: PAIN
     Dosage: FOR LONG-TERM CHRONIC PAIN
  3. NAPROXEN [Concomitant]
     Indication: PROSTATITIS
     Dosage: 1000 MILLIGRAM DAILY; 500MG MORNING AND NIGHT FOR SUSPECTED PROSTATITIS
  4. GLIPIZIDE [Concomitant]
     Indication: TYPE 2 DIABETES MELLITUS
     Dosage: 20 MILLIGRAM DAILY;
  5. CO-CODAMOL [Concomitant]
     Indication: PAIN
     Dosage: 500/8 LONG TERM CHRONIC PAIN/SUSPECTED PROSTATITIS

REACTIONS (4)
  - Depression [Recovering/Resolving]
  - Sweat gland disorder [Recovering/Resolving]
  - Tendon pain [Recovering/Resolving]
  - Decreased appetite [Recovering/Resolving]
